FAERS Safety Report 14821046 (Version 1)
Quarter: 2018Q2

REPORT INFORMATION
  Report Type: Spontaneous
  Country: US (occurrence: US)
  Receive Date: 20180427
  Receipt Date: 20180427
  Transmission Date: 20180711
  Serious: Yes (Hospitalization, Other)
  Sender: FDA-Public Use
  Company Number: US-APOTEX-2018AP012122

PATIENT
  Age: 50 Year
  Sex: Female

DRUGS (3)
  1. GANCICLOVIR. [Suspect]
     Active Substance: GANCICLOVIR
     Indication: DIARRHOEA HAEMORRHAGIC
     Dosage: UNK
     Route: 065
     Dates: start: 20170505
  2. METHYLPREDNISOLONE. [Suspect]
     Active Substance: METHYLPREDNISOLONE
     Indication: DIARRHOEA HAEMORRHAGIC
     Dosage: 90-140 MG DAILY
     Route: 042
  3. BUDESONIDE. [Suspect]
     Active Substance: BUDESONIDE
     Indication: DIARRHOEA HAEMORRHAGIC
     Dosage: UNK
     Route: 065
     Dates: start: 20170515

REACTIONS (1)
  - Drug ineffective [Unknown]
